FAERS Safety Report 4592599-X (Version None)
Quarter: 2005Q1

REPORT INFORMATION
  Report Type: 
  Country: None (occurrence: None)
  Receive Date: 20050228
  Receipt Date: 20050216
  Transmission Date: 20050727
  Serious: Yes (Hospitalization)
  Sender: FDA-Public Use
  Company Number: BE-BRISTOL-MYERS SQUIBB COMPANY-12865796

PATIENT
  Age: 45 Year
  Sex: Male
  Weight: 64 kg

DRUGS (5)
  1. ATAZANAVIR [Suspect]
     Indication: HIV INFECTION
     Route: 048
     Dates: start: 20041204
  2. VIDEX EC [Concomitant]
     Route: 048
     Dates: start: 20041204
  3. NORVIR [Concomitant]
     Route: 048
     Dates: start: 20041204
  4. VIREAD [Concomitant]
     Route: 048
     Dates: start: 20041204
  5. COTRIM [Concomitant]
     Route: 048
     Dates: start: 20041204

REACTIONS (1)
  - CEREBRAL TOXOPLASMOSIS [None]
